FAERS Safety Report 5166281-4 (Version None)
Quarter: 2006Q4

REPORT INFORMATION
  Report Type: 
  Country: None (occurrence: None)
  Receive Date: 20061124
  Receipt Date: 20061121
  Transmission Date: 20070319
  Serious: Yes (Death, Hospitalization)
  Sender: FDA-Public Use
  Company Number: 2005144880

PATIENT
  Sex: Female

DRUGS (16)
  1. NEURONTIN [Suspect]
     Indication: FATIGUE
     Dosage: 1200 MG (400 MG,3 IN 1 D)
     Dates: start: 20020101
  2. NEURONTIN [Suspect]
     Indication: FIBROMYALGIA
     Dosage: 1200 MG (400 MG,3 IN 1 D)
     Dates: start: 20020101
  3. NEURONTIN [Suspect]
     Indication: NEUROPATHY PERIPHERAL
     Dosage: 1200 MG (400 MG,3 IN 1 D)
     Dates: start: 20020101
  4. PROZAC [Concomitant]
  5. TRAZODONE HCL [Concomitant]
  6. XANAX [Concomitant]
  7. MIDRIN (DICHLORALPHENAZONE, ISOMETHEPTENE, PARACETAMOL) [Concomitant]
  8. LORCET-HD [Concomitant]
  9. NITROGLYCERIN [Concomitant]
  10. WELLBUTRIN [Concomitant]
  11. VIOXX [Concomitant]
  12. METHYLPHENIDATE HCL [Concomitant]
  13. ALL OTHER THERAPEUTIC PRODUCTS [Concomitant]
  14. FLEXERIL [Concomitant]
  15. GABATRIL (TIAGABINE HYDROCHLORIDE) [Concomitant]
  16. LEXAPRO [Concomitant]

REACTIONS (12)
  - ALCOHOL POISONING [None]
  - APALLIC SYNDROME [None]
  - COMPLETED SUICIDE [None]
  - ECCHYMOSIS [None]
  - EYE INJURY [None]
  - GUN SHOT WOUND [None]
  - HAEMATOMA [None]
  - HEAD INJURY [None]
  - INTENTIONAL SELF-INJURY [None]
  - INTRAVENTRICULAR HAEMORRHAGE [None]
  - SKULL FRACTURED BASE [None]
  - SUICIDAL IDEATION [None]
